FAERS Safety Report 7528495-5 (Version None)
Quarter: 2011Q2

REPORT INFORMATION
  Report Type: 
  Country: None (occurrence: None)
  Receive Date: 20110607
  Receipt Date: 20100729
  Transmission Date: 20111010
  Serious: No
  Sender: FDA-Public Use
  Company Number: US-ASTRAZENECA-2010SE36291

PATIENT
  Age: 39 Year
  Sex: Female

DRUGS (4)
  1. SYNTHROID [Concomitant]
     Dosage: UNKNOWN
  2. PRILOSEC OTC [Suspect]
     Route: 048
     Dates: start: 20100726, end: 20100728
  3. POTESTATIN [Concomitant]
     Dosage: UNKNOWN
  4. ZOVIA 1/35E-21 [Concomitant]
     Dosage: UNKNOWN

REACTIONS (2)
  - VOMITING [None]
  - ABDOMINAL DISTENSION [None]
